FAERS Safety Report 17368851 (Version 1)
Quarter: 2020Q1

REPORT INFORMATION
  Report Type: Spontaneous
  Country: US (occurrence: US)
  Receive Date: 20200204
  Receipt Date: 20200204
  Transmission Date: 20200409
  Serious: Yes (Life-Threatening, Hospitalization)
  Sender: FDA-Public Use
  Company Number: US-ELI_LILLY_AND_COMPANY-US202001013911

PATIENT
  Sex: Female

DRUGS (1)
  1. HUMALOG [Suspect]
     Active Substance: INSULIN LISPRO
     Indication: TYPE 1 DIABETES MELLITUS
     Dosage: UNK, AT NIGHT
     Route: 065
     Dates: start: 201803

REACTIONS (4)
  - Wrong product stored [Unknown]
  - Ketoacidosis [Unknown]
  - Weight increased [Unknown]
  - Blood glucose increased [Unknown]
